FAERS Safety Report 22383774 (Version 1)
Quarter: 2023Q2

REPORT INFORMATION
  Report Type: Spontaneous
  Country: US (occurrence: US)
  Receive Date: 20230530
  Receipt Date: 20230530
  Transmission Date: 20230721
  Serious: No
  Sender: FDA-Public Use
  Company Number: US-PERRIGO-23US001646

PATIENT
  Age: 44 Year
  Sex: Male
  Weight: 102.04 kg

DRUGS (10)
  1. MINOXIDIL [Suspect]
     Active Substance: MINOXIDIL
     Indication: Alopecia
     Dosage: 1/2 CAPFUL, QD
     Route: 061
     Dates: start: 202210, end: 20230113
  2. MINOXIDIL [Suspect]
     Active Substance: MINOXIDIL
     Dosage: 1/2 CAPFUL, EVERY OTHER DAY
     Route: 061
     Dates: start: 20230113, end: 20230127
  3. THYROID [Concomitant]
     Active Substance: LEVOTHYROXINE\LIOTHYRONINE
     Indication: Thyroid therapy
     Dosage: UNK
     Route: 065
     Dates: start: 202206
  4. PRISTIQ EXTENDED-RELEASE [Concomitant]
     Active Substance: DESVENLAFAXINE SUCCINATE
     Indication: Mood swings
     Dosage: UNK
     Route: 065
     Dates: start: 202102
  5. SEROQUEL [Concomitant]
     Active Substance: QUETIAPINE FUMARATE
     Indication: Insomnia
     Dosage: UNK
     Route: 065
     Dates: start: 202102
  6. TESTOSTERONE [Concomitant]
     Active Substance: TESTOSTERONE
     Indication: Blood testosterone abnormal
     Dosage: UNK
     Route: 065
     Dates: start: 202209
  7. VITAMIN D NOS [Concomitant]
     Active Substance: VITAMIN D NOS
     Indication: Supplementation therapy
     Dosage: UNK
     Route: 065
     Dates: start: 202206
  8. FISH OIL\OMEGA-3 FATTY ACIDS [Concomitant]
     Active Substance: FISH OIL\OMEGA-3 FATTY ACIDS
     Indication: Supplementation therapy
     Dosage: UNK
     Route: 065
  9. METHYL 2-HYDROXYBENZOATE [Concomitant]
     Indication: Supplementation therapy
     Dosage: UNK
     Route: 065
     Dates: start: 202206
  10. VITAMIN B12 [Concomitant]
     Active Substance: CYANOCOBALAMIN
     Indication: Supplementation therapy
     Dosage: UNK
     Route: 065
     Dates: start: 202206

REACTIONS (5)
  - Dry skin [Recovering/Resolving]
  - Application site irritation [Recovering/Resolving]
  - Application site pruritus [Recovered/Resolved]
  - Application site pain [Recovered/Resolved]
  - Inappropriate schedule of product administration [Recovered/Resolved]

NARRATIVE: CASE EVENT DATE: 20221001
